FAERS Safety Report 24589756 (Version 2)
Quarter: 2025Q2

REPORT INFORMATION
  Report Type: Report from Study
  Country: IN (occurrence: IN)
  Receive Date: 20241107
  Receipt Date: 20250604
  Transmission Date: 20250716
  Serious: Yes (Other)
  Sender: NOVARTIS
  Company Number: IN-002147023-NVSC2022IN020238

PATIENT
  Age: 59 Year
  Sex: Female

DRUGS (7)
  1. RIBOCICLIB [Suspect]
     Active Substance: RIBOCICLIB
     Indication: Breast cancer metastatic
     Dosage: 600 MG, QD
     Route: 065
     Dates: start: 20190508
  2. RIBOCICLIB [Suspect]
     Active Substance: RIBOCICLIB
     Indication: Hormone receptor positive HER2 negative breast cancer
     Dosage: 600 MG, QD (FOR 21 DAYS AND 7 DAYS OFF)
     Route: 048
     Dates: start: 20190520
  3. RIBOCICLIB [Suspect]
     Active Substance: RIBOCICLIB
     Dosage: 600 MG, QD (FOR 21 DAYS AND 7 DAYS OFF)
     Route: 048
     Dates: start: 20190605
  4. RIBOCICLIB [Suspect]
     Active Substance: RIBOCICLIB
     Dosage: 600 MG, QD (FOR 21 DAYS AND 7 DAYS OFF)
     Route: 048
     Dates: start: 20221205
  5. RIBOCICLIB [Suspect]
     Active Substance: RIBOCICLIB
     Dosage: 600 MG, QD (FOR 21 DAYS AND 7 DAYS OFF)
     Route: 065
     Dates: start: 20230605
  6. RIBOCICLIB [Suspect]
     Active Substance: RIBOCICLIB
     Dosage: 600 MG, QD
     Route: 048
     Dates: start: 20240825
  7. RIBOCICLIB [Suspect]
     Active Substance: RIBOCICLIB
     Dosage: 600 MG, QD (600 MG ONCE DAILY X 07 DAYS THEN 7 DAYS BREAK)
     Route: 048

REACTIONS (13)
  - Neutropenia [Recovered/Resolved]
  - Breast cancer metastatic [Unknown]
  - Malignant neoplasm progression [Unknown]
  - Metastases to lung [Unknown]
  - Metastases to lymph nodes [Unknown]
  - Pain [Recovered/Resolved]
  - Scar [Unknown]
  - Therapy partial responder [Unknown]
  - Lymphadenopathy mediastinal [Unknown]
  - Hepatic steatosis [Unknown]
  - Hepatic cyst [Unknown]
  - Adnexa uteri cyst [Unknown]
  - Off label use [Unknown]

NARRATIVE: CASE EVENT DATE: 20191021
